FAERS Safety Report 9278718 (Version 2)
Quarter: 2013Q2

REPORT INFORMATION
  Report Type: Report from Study
  Country: US (occurrence: US)
  Receive Date: 20130508
  Receipt Date: 20130618
  Transmission Date: 20140414
  Serious: Yes (Hospitalization, Other)
  Sender: FDA-Public Use
  Company Number: US-ABBOTT-13P-163-1084794-00

PATIENT
  Sex: Male
  Weight: 123.94 kg

DRUGS (1)
  1. HUMIRA [Suspect]
     Indication: PSORIATIC ARTHROPATHY
     Dosage: 40 MG / 0.8 ML PEN EVERY TWO WEEKS
     Dates: start: 20110224, end: 20121101

REACTIONS (1)
  - Osteoarthritis [Unknown]
